FAERS Safety Report 7163400-5 (Version None)
Quarter: 2010Q4

REPORT INFORMATION
  Report Type: 
  Country: None (occurrence: None)
  Receive Date: 20101215
  Receipt Date: 20100413
  Transmission Date: 20110411
  Serious: Yes (Other)
  Sender: FDA-Public Use
  Company Number: ES-PFIZER INC-2010046124

PATIENT
  Age: 73 Year
  Sex: Female

DRUGS (6)
  1. LYRICA [Suspect]
     Indication: SLEEP DISORDER
     Dosage: 300 MG A DAY ( 75MG, 150MG, 75MG)
     Route: 048
     Dates: start: 20091104
  2. LYRICA [Suspect]
     Indication: IRRITABILITY
  3. KEPPRA [Concomitant]
     Dosage: UNK
  4. TENSO STOP [Concomitant]
     Dosage: UNK
  5. DISGREN [Concomitant]
     Dosage: 600 MG, UNK
     Route: 048
  6. OMEPRAZOLE [Concomitant]
     Dosage: UNK
     Route: 048

REACTIONS (1)
  - BRADYCARDIA [None]
